FAERS Safety Report 4327712-2 (Version None)
Quarter: 2004Q1

REPORT INFORMATION
  Report Type: 
  Country: None (occurrence: None)
  Receive Date: 20040325
  Receipt Date: 20040303
  Transmission Date: 20041129
  Serious: Yes (Other)
  Sender: FDA-Public Use
  Company Number: 2004201953US

PATIENT
  Sex: Female

DRUGS (1)
  1. DEPO-PROVERA [Suspect]
     Dosage: 1ST INJECTION,
     Dates: start: 20000101, end: 20000101

REACTIONS (1)
  - SYSTEMIC LUPUS ERYTHEMATOSUS [None]
